FAERS Safety Report 8164372-7 (Version None)
Quarter: 2012Q1

REPORT INFORMATION
  Report Type: 
  Country: None (occurrence: None)
  Receive Date: 20120224
  Receipt Date: 20120217
  Transmission Date: 20120608
  Serious: Yes (Life-Threatening, Other)
  Sender: FDA-Public Use
  Company Number: PHHY2012GB014103

PATIENT
  Age: 52 Year
  Sex: Male

DRUGS (9)
  1. OMEPRAZOLE [Concomitant]
     Dosage: UNK UKN, UNK
  2. ASPIRIN [Concomitant]
     Dosage: 140 MG, UNK
  3. SIMVASTATIN [Concomitant]
     Dosage: UNK UKN, UNK
  4. DILTIAZEM HCL [Suspect]
     Dosage: 3900 MG, UNK
  5. RAMIPRIL [Suspect]
  6. CITALOPRAM HYDROBROMIDE [Concomitant]
     Dosage: UNK UKN, UNK
  7. NICORANDIL [Suspect]
     Dosage: 120 MG, UNK
  8. ISOSORBIDE MONONITRATE [Suspect]
     Dosage: 800 MG, UNK
  9. TAMSULOSIN HCL [Concomitant]
     Dosage: UNK UKN, UNK

REACTIONS (6)
  - OVERDOSE [None]
  - HEART RATE DECREASED [None]
  - MULTIPLE DRUG OVERDOSE [None]
  - SOMNOLENCE [None]
  - HYPOTENSION [None]
  - RENAL FAILURE [None]
